FAERS Safety Report 19165372 (Version 1)
Quarter: 2021Q2

REPORT INFORMATION
  Report Type: Report from Study
  Country: US (occurrence: US)
  Receive Date: 20210421
  Receipt Date: 20210421
  Transmission Date: 20210717
  Serious: Yes (Other)
  Sender: FDA-Public Use
  Company Number: US-IPSEN BIOPHARMACEUTICALS, INC.-2021-09826

PATIENT
  Sex: Male

DRUGS (1)
  1. SOMATULINE DEPOT [Suspect]
     Active Substance: LANREOTIDE ACETATE
     Indication: ACROMEGALY
     Dosage: 60 MG/0.2 ML, UPPER OUTER BUTTOCKS, ROTATING
     Route: 058
     Dates: end: 2021

REACTIONS (3)
  - Diarrhoea [Unknown]
  - Dizziness [Unknown]
  - Flatulence [Unknown]
